FAERS Safety Report 25200239 (Version 4)
Quarter: 2025Q2

REPORT INFORMATION
  Report Type: Spontaneous
  Country: US (occurrence: US)
  Receive Date: 20250415
  Receipt Date: 20250628
  Transmission Date: 20250716
  Serious: No
  Sender: SANOFI AVENTIS
  Company Number: US-SA-2025SA108332

PATIENT
  Age: 55 Year
  Sex: Female
  Weight: 53.64 kg

DRUGS (12)
  1. DUPIXENT [Suspect]
     Active Substance: DUPILUMAB
     Indication: Dermatitis atopic
     Route: 058
  2. DUPIXENT [Suspect]
     Active Substance: DUPILUMAB
     Dosage: 300 MG, QOW
     Route: 058
  3. DOXYCYCLINE [Concomitant]
     Active Substance: DOXYCYCLINE
  4. KETOCONAZOLE [Concomitant]
     Active Substance: KETOCONAZOLE
  5. SERTRALINE [Concomitant]
     Active Substance: SERTRALINE HYDROCHLORIDE
  6. CLOBETASOL PROPIONATE [Concomitant]
     Active Substance: CLOBETASOL PROPIONATE
  7. MUPIROCIN [Concomitant]
     Active Substance: MUPIROCIN
  8. PRILOCAINE [Concomitant]
     Active Substance: PRILOCAINE
  9. TACROLIMUS [Concomitant]
     Active Substance: TACROLIMUS
  10. LIDOCAINE [Concomitant]
     Active Substance: LIDOCAINE
  11. CICLOPIROX [Concomitant]
     Active Substance: CICLOPIROX
  12. EUCRISA [Concomitant]
     Active Substance: CRISABOROLE

REACTIONS (5)
  - Pain in extremity [Unknown]
  - Poor quality sleep [Unknown]
  - Fatigue [Unknown]
  - Headache [Unknown]
  - Eczema [Unknown]
